FAERS Safety Report 8716578 (Version 3)
Quarter: 2013Q1

REPORT INFORMATION
  Report Type: Spontaneous
  Country: US (occurrence: US)
  Receive Date: 20120810
  Receipt Date: 20130206
  Transmission Date: 20140127
  Serious: No
  Sender: FDA-Public Use
  Company Number: US-BIOGENIDEC-2012BI028465

PATIENT
  Age: 35 Year
  Sex: Female

DRUGS (1)
  1. TYSABRI [Suspect]
     Indication: MULTIPLE SCLEROSIS
     Route: 042
     Dates: start: 20120430

REACTIONS (4)
  - Chest pain [Not Recovered/Not Resolved]
  - Fear [Not Recovered/Not Resolved]
  - Tunnel vision [Recovered/Resolved]
  - Dizziness [Not Recovered/Not Resolved]
